FAERS Safety Report 7170225-3 (Version None)
Quarter: 2010Q4

REPORT INFORMATION
  Report Type: 
  Country: None (occurrence: None)
  Receive Date: 20101123
  Receipt Date: 20100924
  Transmission Date: 20110411
  Serious: No
  Sender: FDA-Public Use
  Company Number: 019371

PATIENT
  Sex: Female
  Weight: 92.5 kg

DRUGS (5)
  1. CIMZIA [Suspect]
     Indication: CROHN'S DISEASE
     Dosage: (TWO SHOTS STARTED IN JAN/2009 OR FEB/2009 SUBCUTANEOUS) ; (TWO SHOTS SUBCUTANEOUS)
     Route: 058
     Dates: start: 20090101, end: 20100801
  2. CIMZIA [Suspect]
     Indication: CROHN'S DISEASE
     Dosage: (TWO SHOTS STARTED IN JAN/2009 OR FEB/2009 SUBCUTANEOUS) ; (TWO SHOTS SUBCUTANEOUS)
     Route: 058
     Dates: start: 20100903
  3. LISINOPRIL [Concomitant]
  4. METFORMIN [Concomitant]
  5. SIMVASTATIN [Concomitant]

REACTIONS (3)
  - DIARRHOEA [None]
  - INAPPROPRIATE SCHEDULE OF DRUG ADMINISTRATION [None]
  - NAUSEA [None]
